FAERS Safety Report 5987031-5 (Version None)
Quarter: 2008Q4

REPORT INFORMATION
  Report Type: 
  Country: None (occurrence: None)
  Receive Date: 20081209
  Receipt Date: 20081204
  Transmission Date: 20090506
  Serious: Yes (Hospitalization)
  Sender: FDA-Public Use
  Company Number: B0549065A

PATIENT
  Age: 59 Year
  Sex: Female

DRUGS (2)
  1. AMOXICILLIN TRIHYDRATE [Suspect]
     Indication: ESCHERICHIA URINARY TRACT INFECTION
     Route: 048
     Dates: start: 20081013, end: 20081021
  2. LASIX [Concomitant]
     Indication: DRUG USE FOR UNKNOWN INDICATION
     Route: 048

REACTIONS (6)
  - LEUKOCYTOCLASTIC VASCULITIS [None]
  - RASH [None]
  - RASH MACULAR [None]
  - RASH PRURITIC [None]
  - SKIN LESION [None]
  - VASCULAR PURPURA [None]
